FAERS Safety Report 9370049 (Version 2)
Quarter: 2014Q1

REPORT INFORMATION
  Report Type: Spontaneous
  Country: US (occurrence: US)
  Receive Date: 20130626
  Receipt Date: 20140325
  Transmission Date: 20141002
  Serious: Yes (Hospitalization)
  Sender: FDA-Public Use
  Company Number: US-BAYER-2013-078243

PATIENT
  Age: 40 Year
  Sex: Female
  Weight: 97.05 kg

DRUGS (6)
  1. YAZ [Suspect]
     Dosage: UNK
     Dates: start: 200905
  2. YASMIN [Suspect]
     Dosage: UNK
     Dates: start: 200905
  3. GLYBURIDE [Concomitant]
     Indication: DIABETES MELLITUS
  4. TRICOR [Concomitant]
     Indication: HYPERLIPIDAEMIA
  5. JANUVIA [Concomitant]
  6. METOPROLOL [Concomitant]

REACTIONS (5)
  - Myocardial infarction [None]
  - Injury [None]
  - Pain [None]
  - Fear of disease [None]
  - Pain [None]
